FAERS Safety Report 6840487-8 (Version None)
Quarter: 2010Q3

REPORT INFORMATION
  Report Type: 
  Country: None (occurrence: None)
  Receive Date: 20100714
  Receipt Date: 20100707
  Transmission Date: 20110219
  Serious: Yes (Other)
  Sender: FDA-Public Use
  Company Number: A0858407A

PATIENT
  Age: 60 Year
  Sex: Female

DRUGS (12)
  1. ADVAIR DISKUS 100/50 [Suspect]
     Indication: ASTHMA
     Dosage: 1PUFF THREE TIMES PER DAY
     Route: 055
     Dates: start: 20070101
  2. ADVAIR DISKUS 100/50 [Suspect]
     Dosage: 2PUFF TWICE PER DAY
     Route: 055
     Dates: start: 20100401, end: 20100401
  3. SYMBICORT [Suspect]
     Indication: ASTHMA
     Route: 055
  4. PREDNISONE [Concomitant]
  5. SMZ/TMP DS [Concomitant]
  6. ADVAIR DISKUS 100/50 [Concomitant]
  7. NEBULIZER [Concomitant]
  8. PULMICORT [Concomitant]
  9. IPRATROPIUM [Concomitant]
  10. SINGULAIR [Concomitant]
  11. VITAMINS [Concomitant]
  12. ROBITUSSIN DM [Concomitant]

REACTIONS (7)
  - ABASIA [None]
  - APHASIA [None]
  - COUGH [None]
  - DRUG ADMINISTRATION ERROR [None]
  - DRUG INEFFECTIVE [None]
  - DYSPNOEA [None]
  - ILL-DEFINED DISORDER [None]
